FAERS Safety Report 4511089-3 (Version None)
Quarter: 2004Q4

REPORT INFORMATION
  Report Type: 
  Country: None (occurrence: None)
  Receive Date: 20041015
  Receipt Date: 20040202
  Transmission Date: 20050328
  Serious: Yes (Other)
  Sender: FDA-Public Use
  Company Number: 2004007147

PATIENT
  Sex: Female

DRUGS (5)
  1. NEURONTIN [Suspect]
     Indication: CONVULSION
     Dosage: 300 MG, ORAL
     Route: 048
  2. NEURONTIN [Suspect]
     Indication: DEPRESSION
     Dosage: 300 MG, ORAL
     Route: 048
  3. NEURONTIN [Suspect]
     Indication: PAIN
     Dosage: 300 MG, ORAL
     Route: 048
  4. AMITRIPTYLINE HYDROCHLORIDE [Concomitant]
  5. ALL OTHER THERAPEUTIC PRODUTCS (ALL OTHER THERAPEUTIC PRODUCTS) [Concomitant]

REACTIONS (1)
  - SUICIDAL IDEATION [None]
